FAERS Safety Report 21854470 (Version 1)
Quarter: 2023Q1

REPORT INFORMATION
  Report Type: Spontaneous
  Country: US (occurrence: US)
  Receive Date: 20230112
  Receipt Date: 20230112
  Transmission Date: 20230417
  Serious: No
  Sender: FDA-Public Use
  Company Number: US-BIOGEN-2020BI00900277

PATIENT
  Sex: Female

DRUGS (1)
  1. TECFIDERA [Suspect]
     Active Substance: DIMETHYL FUMARATE
     Indication: Multiple sclerosis
     Route: 050
     Dates: start: 20190915

REACTIONS (5)
  - Magnetic resonance imaging abnormal [Not Recovered/Not Resolved]
  - Skin burning sensation [Recovered/Resolved with Sequelae]
  - White blood cell count decreased [Unknown]
  - Multiple sclerosis relapse [Unknown]
  - Hot flush [Unknown]
